FAERS Safety Report 9664235 (Version 1)
Quarter: 2013Q4

REPORT INFORMATION
  Report Type: Spontaneous
  Country: US (occurrence: None)
  Receive Date: 20131030
  Receipt Date: 20131030
  Transmission Date: 20140711
  Serious: Yes (Other)
  Sender: FDA-Public Use
  Company Number: None

PATIENT
  Age: 66 Year
  Sex: Female
  Weight: 45 kg

DRUGS (1)
  1. MULTIHANCE [Suspect]
     Indication: FALL
     Dosage: 12 ML  ONCE  IV RIGHT ARM
     Route: 042
     Dates: start: 20130928

REACTIONS (4)
  - Nausea [None]
  - Injection site urticaria [None]
  - Injection site erythema [None]
  - Injection site swelling [None]
